FAERS Safety Report 21526215 (Version 2)
Quarter: 2022Q4

REPORT INFORMATION
  Report Type: Spontaneous
  Country: US (occurrence: US)
  Receive Date: 20221031
  Receipt Date: 20221108
  Transmission Date: 20230112
  Serious: No
  Sender: FDA-Public Use
  Company Number: US-drreddys-SPO/USA/22/0155735

PATIENT
  Age: 41 Year
  Sex: Male

DRUGS (1)
  1. ACCUTANE [Suspect]
     Active Substance: ISOTRETINOIN
     Indication: Product used for unknown indication
     Dosage: RMA ISSUE DATES:13 JUNE 2022 03:15:24 AM, 08 JULY 2022 08:35:36 AM, 09 AUGUST 2022 05:54:29 AM

REACTIONS (2)
  - Xerosis [Unknown]
  - Cheilitis [Unknown]
